FAERS Safety Report 23774769 (Version 1)
Quarter: 2024Q2

REPORT INFORMATION
  Report Type: Spontaneous
  Country: CA (occurrence: CA)
  Receive Date: 20240423
  Receipt Date: 20240423
  Transmission Date: 20240715
  Serious: Yes (Other)
  Sender: FDA-Public Use
  Company Number: CA-MYLANLABS-2024M1036275

PATIENT
  Age: 51 Year
  Sex: Male

DRUGS (9)
  1. ATORVASTATIN [Suspect]
     Active Substance: ATORVASTATIN
     Indication: Blood cholesterol abnormal
     Dosage: 80 MILLIGRAM, QD (1 EVERY 1 DAYS)
     Route: 048
  2. ATORVASTATIN [Suspect]
     Active Substance: ATORVASTATIN
     Indication: Anticoagulant therapy
  3. ASPIRIN [Suspect]
     Active Substance: ASPIRIN
     Indication: Anticoagulant therapy
     Dosage: 81 MILLIGRAM, QD (1 EVERY 1 DAYS)
     Route: 065
  4. BISOPROLOL [Suspect]
     Active Substance: BISOPROLOL\BISOPROLOL FUMARATE
     Indication: Heart rate abnormal
     Dosage: 2.5 MILLIGRAM, QD(1 EVERY 1 DAYS)
     Route: 048
  5. BISOPROLOL [Suspect]
     Active Substance: BISOPROLOL\BISOPROLOL FUMARATE
     Indication: Blood pressure measurement
  6. PANTOPRAZOLE [Suspect]
     Active Substance: PANTOPRAZOLE
     Indication: Prophylaxis
     Dosage: 40 MILLIGRAM, QD (1 EVERY 1 DAYS)
     Route: 048
  7. PANTOPRAZOLE [Suspect]
     Active Substance: PANTOPRAZOLE
     Indication: Abdominal discomfort
  8. TICAGRELOR [Suspect]
     Active Substance: TICAGRELOR
     Indication: Anticoagulant therapy
     Dosage: 90 MILLIGRAM, BID(2 EVERY 1 DAYS)
     Route: 048
  9. CANDESARTAN [Concomitant]
     Active Substance: CANDESARTAN
     Dosage: UNK
     Route: 065

REACTIONS (3)
  - Pruritus [Not Recovered/Not Resolved]
  - Rash erythematous [Not Recovered/Not Resolved]
  - Pyrexia [Not Recovered/Not Resolved]
